FAERS Safety Report 16888863 (Version 2)
Quarter: 2019Q4

REPORT INFORMATION
  Report Type: Spontaneous
  Country: US (occurrence: US)
  Receive Date: 20191007
  Receipt Date: 20191018
  Transmission Date: 20200122
  Serious: No
  Sender: FDA-Public Use
  Company Number: US-009507513-1909USA008823

PATIENT
  Age: 22 Year
  Sex: Female
  Weight: 97.51 kg

DRUGS (2)
  1. NEXPLANON [Suspect]
     Active Substance: ETONOGESTREL
     Indication: CONTRACEPTION
     Dosage: 1 ROD, EVERY 3 YEARS, UNSPECIFIED ARM (INNER UPPER ARM)
     Route: 059
     Dates: start: 20190808, end: 20190909
  2. MIRENA [Concomitant]
     Active Substance: LEVONORGESTREL
     Indication: CONTRACEPTION
     Dosage: 1 IUD
     Route: 015
     Dates: start: 2017, end: 20190826

REACTIONS (6)
  - Implant site discharge [Unknown]
  - Device expulsion [Recovered/Resolved]
  - Implant site discolouration [Unknown]
  - Implant site erythema [Unknown]
  - Implant site swelling [Unknown]
  - Medical device site scab [Unknown]

NARRATIVE: CASE EVENT DATE: 20190902
